FAERS Safety Report 8769545 (Version 1)
Quarter: 2012Q4

REPORT INFORMATION
  Report Type: 
  Country: BR (occurrence: BR)
  Receive Date: 20120905
  Receipt Date: 20120905
  Transmission Date: 20130627
  Serious: Yes (Hospitalization)
  Sender: FDA-Public Use
  Company Number: PHHY2012BR076043

PATIENT
  Age: 53 Year
  Sex: Male

DRUGS (1)
  1. STALEVO [Suspect]
     Dosage: 1 DF, daily (50/12.5/200 mg)

REACTIONS (1)
  - Hyperthermia [Unknown]
